FAERS Safety Report 5354010-0 (Version None)
Quarter: 2007Q2

REPORT INFORMATION
  Report Type: 
  Country: None (occurrence: None)
  Receive Date: 20070608
  Receipt Date: 20070608
  Transmission Date: 20071010
  Serious: Yes (Hospitalization)
  Sender: FDA-Public Use
  Company Number: None

PATIENT
  Sex: Male
  Weight: 60.1 kg

DRUGS (4)
  1. DOXORUBICIN HCL [Suspect]
     Dosage: 33 MG
  2. ESTRAMUSTINE [Suspect]
     Dosage: 2940 MG
  3. NIZORAL [Suspect]
     Dosage: 8400 MG
  4. VINBLASTINE SULFATE [Suspect]
     Dosage: 7 MG

REACTIONS (4)
  - ANAEMIA [None]
  - DEHYDRATION [None]
  - FEBRILE NEUTROPENIA [None]
  - WHITE BLOOD CELL COUNT DECREASED [None]
